FAERS Safety Report 14474378 (Version 1)
Quarter: 2018Q1

REPORT INFORMATION
  Report Type: Spontaneous
  Country: US (occurrence: US)
  Receive Date: 20180201
  Receipt Date: 20180201
  Transmission Date: 20180509
  Serious: No
  Sender: FDA-Public Use
  Company Number: US-ENDO PHARMACEUTICALS INC-2017-003829

PATIENT
  Age: 59 Year
  Sex: Female

DRUGS (3)
  1. XANAX [Concomitant]
     Active Substance: ALPRAZOLAM
     Indication: PANIC ATTACK
  2. BUPROPION HYDROCHLORIDE XL [Suspect]
     Active Substance: BUPROPION HYDROCHLORIDE
     Indication: DEPRESSION
     Dosage: 1 DF, DAILY
     Route: 048
     Dates: start: 20170102, end: 20170112
  3. AMBIEN [Concomitant]
     Active Substance: ZOLPIDEM TARTRATE
     Indication: SLEEP DISORDER

REACTIONS (3)
  - Blister [Recovered/Resolved]
  - Blood pressure increased [Unknown]
  - Erythema [Recovered/Resolved]

NARRATIVE: CASE EVENT DATE: 20170112
